FAERS Safety Report 5493277-5 (Version None)
Quarter: 2007Q4

REPORT INFORMATION
  Report Type: 
  Country: None (occurrence: None)
  Receive Date: 20071022
  Receipt Date: 20071022
  Transmission Date: 20080405
  Serious: Yes (Hospitalization, Disabling)
  Sender: FDA-Public Use
  Company Number: None

PATIENT
  Age: 75 Year
  Sex: Female
  Weight: 52.1637 kg

DRUGS (1)
  1. BONIVA [Suspect]
     Indication: OSTEOPOROSIS
     Dosage: 1 MONTH ORAL
     Route: 048
     Dates: start: 20071004

REACTIONS (9)
  - DIARRHOEA [None]
  - FALL [None]
  - GASTROINTESTINAL DISORDER [None]
  - GRIP STRENGTH DECREASED [None]
  - HIP FRACTURE [None]
  - LOSS OF CONSCIOUSNESS [None]
  - NAUSEA [None]
  - RHEUMATOID ARTHRITIS [None]
  - VOMITING [None]
